FAERS Safety Report 5712564-6 (Version None)
Quarter: 2008Q2

REPORT INFORMATION
  Report Type: 
  Country: None (occurrence: None)
  Receive Date: 20080422
  Receipt Date: 20080409
  Transmission Date: 20081010
  Serious: Yes (Hospitalization)
  Sender: FDA-Public Use
  Company Number: US-AMGEN-QUU273807

PATIENT
  Sex: Male

DRUGS (14)
  1. ENBREL [Suspect]
     Indication: PSORIASIS
     Dates: start: 20080408, end: 20080409
  2. ASPIRIN [Concomitant]
  3. AVODART [Concomitant]
  4. FISH OIL [Concomitant]
  5. LIPITOR [Concomitant]
  6. METOPROLOL TARTRATE [Concomitant]
  7. PROTONIX [Concomitant]
  8. TERAZOSIN HCL [Concomitant]
  9. TRICOR [Concomitant]
  10. DERMAZINC [Concomitant]
  11. FLUOCINONIDE [Concomitant]
  12. METHOTREXATE [Concomitant]
  13. WESTCORT [Concomitant]
  14. CLOBETASOL PROPIONATE [Concomitant]

REACTIONS (2)
  - DYSPNOEA [None]
  - THROAT TIGHTNESS [None]
